FAERS Safety Report 7564826-8 (Version None)
Quarter: 2011Q2

REPORT INFORMATION
  Report Type: 
  Country: None (occurrence: None)
  Receive Date: 20110622
  Receipt Date: 20110207
  Transmission Date: 20111010
  Serious: Yes (Other)
  Sender: FDA-Public Use
  Company Number: US-MYLANLABS-2010S1023183

PATIENT
  Age: 22 Year
  Sex: Male

DRUGS (10)
  1. CLOZAPINE [Suspect]
     Indication: ABNORMAL BEHAVIOUR
     Dates: end: 20101229
  2. ABILIFY [Concomitant]
  3. LEVOTHYROXINE SODIUM [Concomitant]
  4. CLOZAPINE [Suspect]
     Dates: end: 20101229
  5. OMEPRAZOLE [Concomitant]
  6. ACYCLOVIR [Concomitant]
  7. CLOZAPINE [Suspect]
     Indication: BIPOLAR DISORDER
     Dates: end: 20101229
  8. CLOZAPINE [Suspect]
     Indication: FOETAL ALCOHOL SYNDROME
     Dates: end: 20101229
  9. CLOZAPINE [Suspect]
     Dates: end: 20101229
  10. CLOZAPINE [Suspect]
     Dates: end: 20101229

REACTIONS (2)
  - GRANULOCYTOPENIA [None]
  - LEUKOPENIA [None]
